FAERS Safety Report 8151375-1 (Version None)
Quarter: 2012Q1

REPORT INFORMATION
  Report Type: 
  Country: None (occurrence: None)
  Receive Date: 20120220
  Receipt Date: 20120217
  Transmission Date: 20120608
  Serious: Yes (Hospitalization)
  Sender: FDA-Public Use
  Company Number: ES-ROCHE-1014276

PATIENT
  Sex: Male
  Weight: 69 kg

DRUGS (8)
  1. MANIDON [Concomitant]
     Route: 048
     Dates: start: 20110826
  2. ASPIRIN [Concomitant]
     Route: 048
     Dates: start: 20110826
  3. OMEPRAZOLE [Concomitant]
     Route: 048
     Dates: start: 20110826
  4. ENANTYUM [Concomitant]
     Route: 048
     Dates: start: 20110923
  5. MABTHERA [Suspect]
     Indication: CHRONIC LYMPHOCYTIC LEUKAEMIA
  6. LENALIDOMIDE [Suspect]
     Indication: CHRONIC LYMPHOCYTIC LEUKAEMIA
     Dosage: DATE OF LAST DOSE PRIOR TO SAE: 28/NOV/2012
     Route: 048
     Dates: start: 20100519
  7. ABSORBASE [Concomitant]
     Route: 061
     Dates: start: 20120203
  8. TRAMADOL HCL [Concomitant]
     Route: 048
     Dates: start: 20110826

REACTIONS (1)
  - CEREBROVASCULAR ACCIDENT [None]
